FAERS Safety Report 13153643 (Version 1)
Quarter: 2017Q1

REPORT INFORMATION
  Report Type: Spontaneous
  Country: US (occurrence: US)
  Receive Date: 20170124
  Receipt Date: 20170124
  Transmission Date: 20170428
  Serious: No
  Sender: FDA-Public Use
  Company Number: None

PATIENT
  Age: 59 Year
  Sex: Female
  Weight: 48.08 kg

DRUGS (4)
  1. CAPECITABINE 500 MG [Suspect]
     Active Substance: CAPECITABINE
     Dates: start: 20151211
  2. PROTONIX [Concomitant]
     Active Substance: PANTOPRAZOLE SODIUM
  3. TYKERB [Suspect]
     Active Substance: LAPATINIB DITOSYLATE
     Indication: BREAST CANCER
     Route: 048
     Dates: start: 20151211
  4. ZANTAC [Concomitant]
     Active Substance: RANITIDINE HYDROCHLORIDE

REACTIONS (5)
  - Limb discomfort [None]
  - Dehydration [None]
  - Abdominal pain [None]
  - Hypersensitivity [None]
  - Decreased appetite [None]

NARRATIVE: CASE EVENT DATE: 20170113
